FAERS Safety Report 23385487 (Version 1)
Quarter: 2024Q1

REPORT INFORMATION
  Report Type: Spontaneous
  Country: IT (occurrence: IT)
  Receive Date: 20240110
  Receipt Date: 20240110
  Transmission Date: 20240410
  Serious: Yes (Other)
  Sender: FDA-Public Use
  Company Number: IT-MINISAL02-963502

PATIENT
  Age: 44 Year
  Sex: Male
  Weight: 81 kg

DRUGS (4)
  1. KETOROLAC [Suspect]
     Active Substance: KETOROLAC TROMETHAMINE
     Indication: Analgesic therapy
     Dosage: PRE EMPTIVE ANALGESIA
     Route: 042
  2. PROPOFOL [Suspect]
     Active Substance: PROPOFOL
     Indication: Anaesthesia
     Dosage: GENERAL ANESTHESIA
     Route: 042
  3. ROCURONIUM BROMIDE [Suspect]
     Active Substance: ROCURONIUM BROMIDE
     Indication: Muscle relaxant therapy
     Dosage: 50 MILLIGRAM
     Route: 042
  4. CEFAZOLIN BENZATHINE [Suspect]
     Active Substance: CEFAZOLIN BENZATHINE
     Indication: Antibiotic prophylaxis
     Dosage: PREOPERATIVE ANTIBIOTIC PROPHYLAXIS
     Route: 042

REACTIONS (1)
  - Dermatitis bullous [Recovered/Resolved]

NARRATIVE: CASE EVENT DATE: 20231211
